FAERS Safety Report 24463275 (Version 1)
Quarter: 2024Q4

REPORT INFORMATION
  Report Type: Report from Study
  Country: US (occurrence: US)
  Receive Date: 20241018
  Receipt Date: 20241018
  Transmission Date: 20250115
  Serious: No
  Sender: ROCHE
  Company Number: US-ROCHE-3051550

PATIENT
  Age: 66 Year
  Sex: Female
  Weight: 102.0 kg

DRUGS (17)
  1. XOLAIR [Suspect]
     Active Substance: OMALIZUMAB
     Indication: Asthma
     Route: 058
  2. XOLAIR [Suspect]
     Active Substance: OMALIZUMAB
     Indication: Asthma
  3. INSULIN NOS [Suspect]
     Active Substance: INSULIN NOS
     Indication: Product used for unknown indication
     Route: 065
  4. PANTOPRAZOLE [Concomitant]
     Active Substance: PANTOPRAZOLE
     Route: 048
  5. MONTELUKAST [Concomitant]
     Active Substance: MONTELUKAST
     Route: 048
  6. FLONASE ALLERGY RELIEF [Concomitant]
     Active Substance: FLUTICASONE PROPIONATE
  7. CLARITIN [Concomitant]
     Active Substance: LORATADINE
     Route: 048
  8. OXYGEN [Concomitant]
     Active Substance: OXYGEN
  9. LOSARTAN [Concomitant]
     Active Substance: LOSARTAN
     Route: 048
  10. FISH OIL [Concomitant]
     Active Substance: FISH OIL
  11. ROSUVASTATIN [Concomitant]
     Active Substance: ROSUVASTATIN
  12. VITAMIN D3 [Concomitant]
     Active Substance: CHOLECALCIFEROL
  13. SPIRIVA [Concomitant]
     Active Substance: TIOTROPIUM BROMIDE MONOHYDRATE
     Route: 048
  14. LEVEMIR [Concomitant]
     Active Substance: INSULIN DETEMIR
  15. RECLAST [Concomitant]
     Active Substance: ZOLEDRONIC ACID
  16. BREO ELLIPTA [Concomitant]
     Active Substance: FLUTICASONE FUROATE\VILANTEROL TRIFENATATE
     Dosage: 200 - 25 MCG
  17. NOVOLOG [Concomitant]
     Active Substance: INSULIN ASPART
     Route: 058

REACTIONS (6)
  - Urticaria [Unknown]
  - Skin reaction [Unknown]
  - Productive cough [Unknown]
  - Wheezing [Unknown]
  - Illness [Unknown]
  - Off label use [Unknown]
